FAERS Safety Report 5662263-4 (Version None)
Quarter: 2008Q1

REPORT INFORMATION
  Report Type: 
  Country: None (occurrence: None)
  Receive Date: 20080312
  Receipt Date: 20080303
  Transmission Date: 20080703
  Serious: Yes (Life-Threatening, Hospitalization)
  Sender: FDA-Public Use
  Company Number: CH-PFIZER INC-2008010857

PATIENT
  Sex: Female
  Weight: 64 kg

DRUGS (8)
  1. CABERGOLINE [Suspect]
     Indication: PARKINSONISM
     Route: 048
     Dates: start: 20041201, end: 20080101
  2. PANTOZOL [Concomitant]
     Dosage: DAILY DOSE:80MG
     Route: 048
  3. CLOZAPINE [Concomitant]
     Dosage: DAILY DOSE:250MG
     Route: 048
     Dates: end: 20080101
  4. METFORMIN HCL [Concomitant]
     Dosage: DAILY DOSE:850MG
     Route: 048
     Dates: end: 20080101
  5. SINEMET [Concomitant]
     Route: 048
     Dates: end: 20080101
  6. VESICARE [Concomitant]
     Dosage: DAILY DOSE:5MG
     Route: 048
     Dates: end: 20080101
  7. ALL OTHER THERAPEUTIC PRODUCTS [Concomitant]
     Route: 048
     Dates: end: 20080101
  8. PREDNISONE [Concomitant]
     Dosage: DAILY DOSE:40MG
     Dates: end: 20080101

REACTIONS (1)
  - LUNG DISORDER [None]
